FAERS Safety Report 20791920 (Version 2)
Quarter: 2022Q2

REPORT INFORMATION
  Report Type: Spontaneous
  Country: FR (occurrence: FR)
  Receive Date: 20220505
  Receipt Date: 20220518
  Transmission Date: 20220721
  Serious: Yes (Life-Threatening, Hospitalization)
  Sender: FDA-Public Use
  Company Number: FR-TEVA-2022-FR-2033158

PATIENT
  Age: 25 Year
  Sex: Male
  Weight: 103 kg

DRUGS (3)
  1. MYCOPHENOLATE MOFETIL [Suspect]
     Active Substance: MYCOPHENOLATE MOFETIL
     Indication: Immune-mediated myocarditis
     Route: 065
  2. PEMBROLIZUMAB [Suspect]
     Active Substance: PEMBROLIZUMAB
     Indication: Thymoma
     Route: 065
  3. METHYLPREDNISOLONE [Suspect]
     Active Substance: METHYLPREDNISOLONE
     Indication: Immune-mediated myocarditis
     Dosage: 1 GRAM DAILY; THREE DOSES
     Route: 040

REACTIONS (8)
  - Immune-mediated myocarditis [Recovered/Resolved]
  - Pericardial effusion [Recovered/Resolved]
  - Oedema [Recovered/Resolved]
  - Immune-mediated myositis [Recovered/Resolved]
  - Cardiogenic shock [Recovered/Resolved]
  - Ventricular tachycardia [Recovered/Resolved]
  - Defect conduction intraventricular [Recovered/Resolved]
  - Drug ineffective [Unknown]
